FAERS Safety Report 10399948 (Version 4)
Quarter: 2016Q2

REPORT INFORMATION
  Report Type: Spontaneous
  Country: US (occurrence: US)
  Receive Date: 20130815
  Receipt Date: 20160601
  Transmission Date: 20160815
  Serious: Yes (Other)
  Sender: FDA-Public Use
  Company Number: ADR-2012-01754

PATIENT
  Age: 56 Year
  Sex: Male

DRUGS (2)
  1. BACLOFEN. [Suspect]
     Active Substance: BACLOFEN
     Dosage: 1802 MCG/DAY
     Route: 037
  2. GABLOFEN [Suspect]
     Active Substance: BACLOFEN
     Route: 037

REACTIONS (7)
  - Drug withdrawal syndrome [Unknown]
  - Dyskinesia [Unknown]
  - Abnormal behaviour [Unknown]
  - Muscle spasms [Unknown]
  - Muscle spasticity [Unknown]
  - Flushing [Unknown]
  - Feeling jittery [Unknown]
